FAERS Safety Report 9512032 (Version 2)
Quarter: 2014Q1

REPORT INFORMATION
  Report Type: Spontaneous
  Country: US (occurrence: US)
  Receive Date: 20130910
  Receipt Date: 20140204
  Transmission Date: 20141002
  Serious: Yes (Hospitalization, Other)
  Sender: FDA-Public Use
  Company Number: US-NOVOPROD-386602

PATIENT
  Age: 55 Year
  Sex: Female
  Weight: 92.06 kg

DRUGS (2)
  1. VICTOZA [Suspect]
     Indication: TYPE 2 DIABETES MELLITUS
     Dosage: 0.6 MG, QD FOR 2 WEEKS
     Route: 058
     Dates: start: 20110121, end: 2011
  2. VICTOZA [Suspect]
     Dosage: 1.2 MG, QD
     Route: 058
     Dates: start: 2011, end: 20120623

REACTIONS (2)
  - Adenocarcinoma pancreas [Not Recovered/Not Resolved]
  - Pancreatic carcinoma recurrent [Not Recovered/Not Resolved]
